FAERS Safety Report 13139831 (Version 2)
Quarter: 2018Q1

REPORT INFORMATION
  Report Type: Spontaneous
  Country: IT (occurrence: IT)
  Receive Date: 20170123
  Receipt Date: 20180226
  Transmission Date: 20180508
  Serious: Yes (Death, Other)
  Sender: FDA-Public Use
  Company Number: IT-MYLANLABS-2017M1003472

PATIENT
  Age: 75 Year
  Sex: Male
  Weight: 70 kg

DRUGS (3)
  1. CARBOPLATIN. [Suspect]
     Active Substance: CARBOPLATIN
     Indication: PROSTATE CANCER
     Dosage: UNK, CYCLE
  2. EPIRUBICIN [Suspect]
     Active Substance: EPIRUBICIN
     Indication: PROSTATE CANCER
     Dosage: UNK, CYCLE
  3. OCTREOTIDE. [Concomitant]
     Active Substance: OCTREOTIDE
     Indication: PRODUCT USED FOR UNKNOWN INDICATION

REACTIONS (4)
  - Febrile neutropenia [Unknown]
  - Neutropenia [Fatal]
  - Sepsis [Fatal]
  - Intestinal perforation [Fatal]
